FAERS Safety Report 6212974-7 (Version None)
Quarter: 2009Q2

REPORT INFORMATION
  Report Type: 
  Country: None (occurrence: None)
  Receive Date: 20090602
  Receipt Date: 20090602
  Transmission Date: 20091009
  Serious: Yes (Hospitalization)
  Sender: FDA-Public Use
  Company Number: None

PATIENT
  Sex: Male
  Weight: 10 kg

DRUGS (4)
  1. CARBOPLATIN [Suspect]
     Dosage: 968 MG
  2. ETOPOSIDE [Suspect]
     Dosage: 772 MG
  3. G-CSF (FILGRASTIM, AMGEN) [Suspect]
  4. MELPHALAN [Suspect]
     Dosage: 120 MG

REACTIONS (12)
  - ABDOMINAL COMPARTMENT SYNDROME [None]
  - APNOEA [None]
  - BRADYCARDIA [None]
  - CARDIO-RESPIRATORY ARREST [None]
  - ERYTHEMA [None]
  - GALLBLADDER DISORDER [None]
  - GASTROINTESTINAL OEDEMA [None]
  - HYPOTENSION [None]
  - ILEUS [None]
  - TACHYPNOEA [None]
  - UNRESPONSIVE TO STIMULI [None]
  - WHITE BLOOD CELL COUNT DECREASED [None]
